FAERS Safety Report 22069048 (Version 1)
Quarter: 2023Q1

REPORT INFORMATION
  Report Type: Spontaneous
  Country: US (occurrence: US)
  Receive Date: 20230307
  Receipt Date: 20230307
  Transmission Date: 20230418
  Serious: No
  Sender: FDA-Public Use
  Company Number: US-AMNEAL PHARMACEUTICALS-2022-AMRX-00699

PATIENT
  Sex: Male

DRUGS (1)
  1. RYTARY [Suspect]
     Active Substance: CARBIDOPA\LEVODOPA
     Indication: Parkinson^s disease
     Dosage: 2 CAPSULES, 3X/DAY, MAY TAKE ADDITIONAL CAPSULE IF NEEDED
     Route: 048
     Dates: start: 20220214

REACTIONS (5)
  - Foreign body in throat [Unknown]
  - Cough [Unknown]
  - Dysphagia [Unknown]
  - Tremor [Unknown]
  - Product size issue [Unknown]

NARRATIVE: CASE EVENT DATE: 20220101
